FAERS Safety Report 4771703-4 (Version None)
Quarter: 2005Q3

REPORT INFORMATION
  Report Type: 
  Country: None (occurrence: None)
  Receive Date: 20050916
  Receipt Date: 20050909
  Transmission Date: 20060218
  Serious: Yes (Hospitalization)
  Sender: FDA-Public Use
  Company Number: 200513012FR

PATIENT
  Age: 20 Year
  Sex: Female
  Weight: 50 kg

DRUGS (3)
  1. LOVENOX [Suspect]
     Indication: SUBCLAVIAN VEIN THROMBOSIS
     Route: 058
     Dates: start: 20050810
  2. PREVISCAN 20 MG [Suspect]
     Indication: SUBCLAVIAN VEIN THROMBOSIS
     Route: 048
     Dates: start: 20050812, end: 20050816
  3. ADEPAL [Suspect]
     Indication: CONTRACEPTION
     Route: 048
     Dates: end: 20050810

REACTIONS (9)
  - ALANINE AMINOTRANSFERASE INCREASED [None]
  - APLASIA PURE RED CELL [None]
  - ASPARTATE AMINOTRANSFERASE INCREASED [None]
  - GAMMA-GLUTAMYLTRANSFERASE INCREASED [None]
  - HEPATOCELLULAR DAMAGE [None]
  - LEUKOPENIA [None]
  - NEUTROPENIA [None]
  - PARVOVIRUS B19 SEROLOGY POSITIVE [None]
  - VIRAL INFECTION [None]
